FAERS Safety Report 5005073-3 (Version None)
Quarter: 2006Q2

REPORT INFORMATION
  Report Type: 
  Country: None (occurrence: None)
  Receive Date: 20060512
  Receipt Date: 20060504
  Transmission Date: 20061013
  Serious: Yes (Other)
  Sender: FDA-Public Use
  Company Number: HQWYE201305MAY06

PATIENT
  Age: 54 Year
  Sex: Female

DRUGS (8)
  1. TEMSIROLIMUS (TEMSIROLIMUS, TABLET) [Suspect]
     Indication: BREAST CANCER
     Dosage: 30 MG 1X PER 1 DAY ORAL
     Route: 048
     Dates: start: 20051027
  2. LETROZOLE/TEMSIROLIMUS (LETROZOLE/TEMSIROLIMUS, TABLET) [Suspect]
     Indication: BREAST CANCER
     Dosage: 2.5 MG ORAL
     Route: 048
     Dates: start: 20051027
  3. BONEFOS ^ASTRA^ (CLODRONATE DISODIUM) [Concomitant]
  4. KETONAL (KETOPROFEN) [Concomitant]
  5. THEOPHYLLINE [Concomitant]
  6. PREDNISOLONE [Concomitant]
  7. BERODUAL (FENOTEROL HYDROBROMIDE/IPRATROPIUM BROMIDE) [Concomitant]
  8. BECLAZONE (BECLOMETHASONE DIPROPIONATE) [Concomitant]

REACTIONS (3)
  - ANAEMIA [None]
  - METASTASES TO BONE [None]
  - THROMBOCYTOPENIA [None]
